FAERS Safety Report 17537040 (Version 1)
Quarter: 2020Q1

REPORT INFORMATION
  Report Type: Spontaneous
  Country: DE (occurrence: DE)
  Receive Date: 20200313
  Receipt Date: 20200313
  Transmission Date: 20200409
  Serious: Yes (Death, Hospitalization, Other)
  Sender: FDA-Public Use
  Company Number: DE-ACCORD-175633

PATIENT
  Age: 70 Year
  Sex: Female
  Weight: 71 kg

DRUGS (14)
  1. TAVOR [Concomitant]
     Dosage: MEDICATION AS NECESSARY 3 TIMES A DAY 1MG
  2. INSULIN DETEMIR [Concomitant]
     Active Substance: INSULIN DETEMIR
     Dosage: 0-0-0-40
  3. SIMVASTATIN. [Concomitant]
     Active Substance: SIMVASTATIN
     Dosage: 0-0-1
  4. PREDNISOLONE. [Concomitant]
     Active Substance: PREDNISOLONE
  5. MYCOPHENOLIC ACID. [Suspect]
     Active Substance: MYCOPHENOLIC ACID
     Indication: RENAL TRANSPLANT
     Dosage: 1X EVERY 4 WEEKS
     Route: 042
  6. PREDNISOLONE. [Concomitant]
     Active Substance: PREDNISOLONE
  7. ASPIRIN. [Concomitant]
     Active Substance: ASPIRIN
     Dosage: 1-0-0
  8. NULOJIX [Suspect]
     Active Substance: BELATACEPT
     Indication: IMMUNOSUPPRESSANT DRUG THERAPY
     Dosage: 1X EVERY 4 WEEKS
     Route: 042
     Dates: end: 20200107
  9. HALOPERIDOL. [Concomitant]
     Active Substance: HALOPERIDOL
     Indication: AGITATION
     Dosage: MEDICATION AS NECESSARY UP TO 3X30 DRIP
  10. TOREM [Concomitant]
     Active Substance: TORSEMIDE
     Dosage: 1-0.5-0
  11. ACTRAPID [Concomitant]
     Active Substance: INSULIN HUMAN
     Dosage: IE ACCORDING TO A VALUE
  12. CELLCEPT [Concomitant]
     Active Substance: MYCOPHENOLATE MOFETIL\MYCOPHENOLATE MOFETIL HYDROCHLORIDE
     Dosage: 1-0-1
  13. BISOPROLOL [Concomitant]
     Active Substance: BISOPROLOL
     Dosage: 1-0-0
  14. RAMIPRIL. [Concomitant]
     Active Substance: RAMIPRIL
     Dosage: 2-5 1-0-1

REACTIONS (1)
  - Progressive multifocal leukoencephalopathy [Fatal]

NARRATIVE: CASE EVENT DATE: 2020
